FAERS Safety Report 9176029 (Version 1)
Quarter: 2013Q1

REPORT INFORMATION
  Report Type: Spontaneous
  Country: JP (occurrence: JP)
  Receive Date: 20130320
  Receipt Date: 20130320
  Transmission Date: 20140127
  Serious: Yes (Death)
  Sender: FDA-Public Use
  Company Number: JP-MYLANLABS-2013S1004080

PATIENT
  Age: 57 Year
  Sex: Female
  Weight: 62.7 kg

DRUGS (18)
  1. IRINOTECAN [Suspect]
     Indication: CERVIX CARCINOMA
     Route: 041
     Dates: start: 20130131, end: 20130131
  2. AQUPLA [Suspect]
     Indication: CERVIX CARCINOMA
     Route: 041
     Dates: start: 20130131, end: 20130131
  3. SOLDEM 3A [Concomitant]
     Indication: FLUID REPLACEMENT
     Dosage: INJECTION
     Route: 041
     Dates: start: 20130131, end: 20130131
  4. SALINE [Concomitant]
     Indication: FLUID REPLACEMENT
     Dosage: INJECTION
     Route: 041
     Dates: start: 20130131, end: 20130131
  5. LANTUS [Concomitant]
     Indication: DIABETES MELLITUS
     Dosage: INJECTION
     Route: 058
     Dates: start: 20130131, end: 20130201
  6. LANTUS [Concomitant]
     Indication: DIABETES MELLITUS
     Dosage: INJECTION
     Route: 058
     Dates: start: 20130131, end: 20130202
  7. LANTUS [Concomitant]
     Indication: DIABETES MELLITUS
     Dosage: INJECTION
     Route: 058
     Dates: start: 20130202, end: 20130203
  8. LANTUS [Concomitant]
     Indication: DIABETES MELLITUS
     Dosage: INJECTION
     Route: 058
     Dates: start: 20130205, end: 20130206
  9. LANTUS [Concomitant]
     Indication: DIABETES MELLITUS
     Dosage: INJECTION
     Route: 058
     Dates: start: 20130205, end: 20130205
  10. LANTUS [Concomitant]
     Indication: DIABETES MELLITUS
     Dosage: INJECTION
     Route: 058
     Dates: start: 20130206, end: 20130206
  11. GRANISETRON /01178102/ [Concomitant]
     Indication: PROPHYLAXIS OF NAUSEA AND VOMITING
     Dosage: INJECTION
     Route: 041
     Dates: start: 20130131, end: 20130131
  12. DEXART [Concomitant]
     Indication: PROPHYLAXIS OF NAUSEA AND VOMITING
     Dosage: INJECTION
     Route: 041
     Dates: start: 20130131, end: 20130131
  13. EMEND /01627301/ [Concomitant]
     Indication: PROPHYLAXIS OF NAUSEA AND VOMITING
     Dosage: CAPSULE
     Route: 048
     Dates: start: 20130131, end: 20130131
  14. EMEND /01627301/ [Concomitant]
     Indication: PROPHYLAXIS OF NAUSEA AND VOMITING
     Dosage: CAPSULE
     Route: 048
     Dates: start: 20130201, end: 20130203
  15. OXYCONTIN [Concomitant]
     Indication: CANCER PAIN
     Dosage: TABLETS
     Route: 048
     Dates: start: 20130117, end: 20130204
  16. MAGLAX [Concomitant]
     Indication: CONSTIPATION PROPHYLAXIS
     Dosage: 330 MG TABLETS
     Route: 048
     Dates: start: 20130131, end: 20130204
  17. LOXONIN [Concomitant]
     Indication: CANCER PAIN
     Dosage: TABLETS
     Route: 048
     Dates: start: 20130114, end: 20130204
  18. MUCOSTA [Concomitant]
     Indication: PROPHYLAXIS AGAINST GASTROINTESTINAL ULCER
     Dosage: 100 MG TABLETS
     Route: 048
     Dates: start: 20130114, end: 20130204

REACTIONS (7)
  - Sepsis [Fatal]
  - Neutropenia [Fatal]
  - Thrombocytopenia [Fatal]
  - Disseminated intravascular coagulation [Fatal]
  - Gastrointestinal haemorrhage [Fatal]
  - Anaemia [Not Recovered/Not Resolved]
  - Clostridium difficile colitis [Not Recovered/Not Resolved]
